FAERS Safety Report 5269948-2 (Version None)
Quarter: 2007Q1

REPORT INFORMATION
  Report Type: 
  Country: None (occurrence: None)
  Receive Date: 20061214
  Receipt Date: 20060426
  Transmission Date: 20070707
  Serious: Yes (Hospitalization)
  Sender: FDA-Public Use
  Company Number: 2006057505

PATIENT
  Sex: Male
  Weight: 86.1834 kg

DRUGS (11)
  1. BEXTRA [Suspect]
     Indication: ILL-DEFINED DISORDER
  2. CELEBREX [Suspect]
     Indication: ARTHRALGIA
     Dosage: 200 TO 400 MILLIGRAM (2 IN 1 D);
     Dates: start: 19990101, end: 20020101
  3. MORPHINE [Concomitant]
  4. ADVIL [Concomitant]
  5. ALEVE [Concomitant]
  6. ASPIRIN [Concomitant]
  7. CODEINE SUL TAB [Concomitant]
  8. DARVOCET [Concomitant]
  9. DEMEROL [Concomitant]
  10. PERCOCET [Concomitant]
  11. TYENOL (PARACETAMOL) [Concomitant]

REACTIONS (2)
  - MYOCARDIAL INFARCTION [None]
  - PULMONARY EMBOLISM [None]
